FAERS Safety Report 5177244-7 (Version None)
Quarter: 2006Q4

REPORT INFORMATION
  Report Type: 
  Country: None (occurrence: None)
  Receive Date: 20061218
  Receipt Date: 20061207
  Transmission Date: 20070319
  Serious: Yes (Hospitalization)
  Sender: FDA-Public Use
  Company Number: US-ELI_LILLY_AND_COMPANY-US200612001265

PATIENT
  Age: 8 Year
  Sex: Female

DRUGS (7)
  1. STRATTERA [Suspect]
     Indication: ATTENTION DEFICIT/HYPERACTIVITY DISORDER
     Dosage: 40 MG, DAILY (1/D)
     Dates: start: 20040101
  2. STRATTERA [Suspect]
     Dosage: 58 MG, UNK
     Dates: start: 20060601
  3. STRATTERA [Suspect]
     Dosage: 40 MG, UNK
     Dates: start: 20060101
  4. STRATTERA [Suspect]
     Dosage: 60 MG, UNK
     Dates: start: 20061109
  5. TENEX [Concomitant]
     Dosage: 1 MG, 2/D
  6. ABILIFY [Concomitant]
  7. ZOLOFT [Concomitant]

REACTIONS (10)
  - ABNORMAL BEHAVIOUR [None]
  - AGGRESSION [None]
  - DRUG INEFFECTIVE [None]
  - HOSPITALISATION [None]
  - LAZINESS [None]
  - OPPOSITIONAL DEFIANT DISORDER [None]
  - PSYCHOMOTOR HYPERACTIVITY [None]
  - SLUGGISHNESS [None]
  - SOMNOLENCE [None]
  - STARING [None]
